FAERS Safety Report 7709741-1 (Version None)
Quarter: 2011Q3

REPORT INFORMATION
  Report Type: 
  Country: None (occurrence: None)
  Receive Date: 20110819
  Receipt Date: 20110804
  Transmission Date: 20111222
  Serious: Yes (Hospitalization, Other)
  Sender: FDA-Public Use
  Company Number: 1000021962

PATIENT
  Age: 49 Year
  Sex: Female
  Weight: 64 kg

DRUGS (3)
  1. CITALOPRAM HYDROBROMIDE [Suspect]
     Dosage: 20, 30  MG (20, 30  MG, 1 IN 1 D0, ORAL
     Route: 048
     Dates: start: 20110227, end: 20110317
  2. CITALOPRAM HYDROBROMIDE [Suspect]
     Dosage: 20, 30  MG (20, 30  MG, 1 IN 1 D0, ORAL
     Route: 048
     Dates: start: 20110318, end: 20110322
  3. MIRTAZAPINE [Concomitant]

REACTIONS (9)
  - DEPRESSION [None]
  - NAUSEA [None]
  - TENSION [None]
  - ANXIETY [None]
  - CONDITION AGGRAVATED [None]
  - ABDOMINAL PAIN UPPER [None]
  - RESTLESSNESS [None]
  - SUICIDAL BEHAVIOUR [None]
  - AGITATION [None]
